FAERS Safety Report 12919949 (Version 2)
Quarter: 2016Q4

REPORT INFORMATION
  Report Type: Spontaneous
  Country: JP (occurrence: JP)
  Receive Date: 20161107
  Receipt Date: 20161128
  Transmission Date: 20170207
  Serious: No
  Sender: FDA-Public Use
  Company Number: JP-ELI_LILLY_AND_COMPANY-JP201611001541

PATIENT
  Age: 61 Year
  Sex: Female

DRUGS (2)
  1. GEMZAR [Suspect]
     Active Substance: GEMCITABINE HYDROCHLORIDE
     Indication: PANCREATIC CARCINOMA STAGE II
     Dosage: 1000 MG, OTHER
     Route: 042
  2. TS-1 [Concomitant]
     Active Substance: GIMERACIL\OTERACIL\TEGAFUR
     Indication: PANCREATIC CARCINOMA STAGE II
     Dosage: 80 MG, OTHER
     Route: 048

REACTIONS (2)
  - Thrombophlebitis [Recovered/Resolved]
  - Arthralgia [Recovered/Resolved]
